FAERS Safety Report 4721025-2 (Version None)
Quarter: 2005Q3

REPORT INFORMATION
  Report Type: 
  Country: None (occurrence: None)
  Receive Date: 20050719
  Receipt Date: 20041026
  Transmission Date: 20060218
  Serious: Yes (Other)
  Sender: FDA-Public Use
  Company Number: 2004241528US

PATIENT
  Sex: Female
  Weight: 83 kg

DRUGS (14)
  1. CELEBREX [Suspect]
     Indication: ARTHRITIS
     Dosage: SEE IMAGE
     Route: 048
     Dates: start: 20010101
  2. ZANTAC [Concomitant]
  3. HUMALOG [Concomitant]
  4. LANTUS [Concomitant]
  5. ELAVIL [Concomitant]
  6. FLOVENT [Concomitant]
  7. ACCUPRIL [Concomitant]
  8. CALCIUM GLUCONATE [Concomitant]
  9. MULTIVITAMINS (ERGOCALCIFEROL, RETINOL, PANTHENOL) [Concomitant]
  10. LIPITOR [Concomitant]
  11. AMIODARONE HCL [Concomitant]
  12. PREDNISONE [Concomitant]
  13. CUMADIN (WARFARIN SODIUM) [Concomitant]
  14. LASIX [Concomitant]

REACTIONS (4)
  - DRUG INEFFECTIVE [None]
  - OEDEMA PERIPHERAL [None]
  - RENAL FAILURE [None]
  - SKIN ULCER [None]
